FAERS Safety Report 23587007 (Version 1)
Quarter: 2024Q1

REPORT INFORMATION
  Report Type: Spontaneous
  Country: US (occurrence: None)
  Receive Date: 20240301
  Receipt Date: 20240301
  Transmission Date: 20240410
  Serious: Yes (Hospitalization)
  Sender: FDA-Public Use
  Company Number: None

PATIENT
  Age: 84 Year
  Sex: Female
  Weight: 76.1 kg

DRUGS (6)
  1. ALPELISIB [Suspect]
     Active Substance: ALPELISIB
     Indication: Breast cancer
     Dosage: FREQUENCY : DAILY;?
     Route: 048
     Dates: start: 20240208, end: 20240219
  2. FULVESTRANT [Suspect]
     Active Substance: FULVESTRANT
  3. OXYGEN [Concomitant]
     Active Substance: OXYGEN
  4. CEFTRIAZONE [Concomitant]
  5. DOXYCYCLINE [Concomitant]
     Active Substance: DOXYCYCLINE
  6. IOHEXOL [Concomitant]
     Active Substance: IOHEXOL

REACTIONS (6)
  - Dyspnoea [None]
  - Fatigue [None]
  - Hypoxia [None]
  - Intentional dose omission [None]
  - Lung opacity [None]
  - Pneumonitis [None]

NARRATIVE: CASE EVENT DATE: 20240220
